FAERS Safety Report 9548340 (Version 1)
Quarter: 2013Q3

REPORT INFORMATION
  Report Type: Spontaneous
  Country: US (occurrence: None)
  Receive Date: 20130705
  Receipt Date: 20130705
  Transmission Date: 20140515
  Serious: Yes (Life-Threatening, Hospitalization)
  Sender: FDA-Public Use
  Company Number: RB-51451-2013

PATIENT
  Age: 9 Month
  Sex: Female

DRUGS (1)
  1. SUBOXONE 8 MG [Suspect]
     Indication: ACCIDENTAL EXPOSURE TO PRODUCT BY CHILD
     Route: 048
     Dates: start: 201303, end: 201303

REACTIONS (3)
  - Accidental exposure to product by child [None]
  - Somnolence [None]
  - Miosis [None]
